FAERS Safety Report 5213217-3 (Version None)
Quarter: 2007Q1

REPORT INFORMATION
  Report Type: 
  Country: None (occurrence: None)
  Receive Date: 20070119
  Receipt Date: 20060912
  Transmission Date: 20070707
  Serious: Yes (Hospitalization)
  Sender: FDA-Public Use
  Company Number: JP-AVENTIS-200614713EU

PATIENT
  Age: 70 Year
  Sex: Male

DRUGS (3)
  1. TAKEPRON [Suspect]
     Indication: REFLUX OESOPHAGITIS
     Route: 048
     Dates: start: 20060810, end: 20060821
  2. LASIX [Suspect]
     Indication: DRUG USE FOR UNKNOWN INDICATION
  3. LOXONIN                            /00890701/ [Concomitant]
     Indication: DRUG USE FOR UNKNOWN INDICATION

REACTIONS (1)
  - OCULOMUCOCUTANEOUS SYNDROME [None]
